FAERS Safety Report 21209814 (Version 1)
Quarter: 2022Q3

REPORT INFORMATION
  Report Type: Spontaneous
  Country: US (occurrence: None)
  Receive Date: 20220813
  Receipt Date: 20220813
  Transmission Date: 20221027
  Serious: Yes (Other)
  Sender: FDA-Public Use
  Company Number: 2022A280219

PATIENT
  Age: 66 Year
  Sex: Female

DRUGS (2)
  1. CALQUENCE [Suspect]
     Active Substance: ACALABRUTINIB
     Indication: Chronic lymphocytic leukaemia
     Route: 048
     Dates: start: 202011
  2. CALQUENCE [Suspect]
     Active Substance: ACALABRUTINIB
     Indication: Nodal marginal zone B-cell lymphoma
     Route: 048
     Dates: start: 202011

REACTIONS (12)
  - Gastrointestinal ulcer haemorrhage [Unknown]
  - Neutrophil count decreased [Unknown]
  - Haemoglobin abnormal [Unknown]
  - Faeces discoloured [Unknown]
  - Haematemesis [Unknown]
  - Blood pressure decreased [Unknown]
  - Lymph node pain [Unknown]
  - Gait disturbance [Unknown]
  - Infection [Unknown]
  - Rash [Unknown]
  - Pyrexia [Unknown]
  - Lymphadenopathy [Unknown]

NARRATIVE: CASE EVENT DATE: 20210101
